FAERS Safety Report 5975192-3 (Version None)
Quarter: 2008Q4

REPORT INFORMATION
  Report Type: 
  Country: None (occurrence: None)
  Receive Date: 20081202
  Receipt Date: 20080909
  Transmission Date: 20090506
  Serious: No
  Sender: FDA-Public Use
  Company Number: US-ABBOTT-08P-163-0475206-00

PATIENT
  Age: 18 Year
  Sex: Female
  Weight: 63.56 kg

DRUGS (3)
  1. LUPRON DEPOT [Suspect]
     Indication: ENDOMETRIOSIS
     Route: 050
     Dates: start: 20080701
  2. DOXYCYCLINE [Concomitant]
     Indication: ACNE
     Route: 048
  3. DOXYCYCLINE [Concomitant]

REACTIONS (3)
  - ACNE [None]
  - HOT FLUSH [None]
  - VULVOVAGINAL PAIN [None]
